FAERS Safety Report 6828168-8 (Version None)
Quarter: 2010Q3

REPORT INFORMATION
  Report Type: 
  Country: None (occurrence: None)
  Receive Date: 20100709
  Receipt Date: 20100629
  Transmission Date: 20110219
  Serious: Yes (Hospitalization, Other)
  Sender: FDA-Public Use
  Company Number: US-ROCHE-712717

PATIENT
  Sex: Female
  Weight: 49.4 kg

DRUGS (3)
  1. BEVACIZUMAB [Suspect]
     Indication: BREAST CANCER METASTATIC
     Route: 041
  2. TRASTUZUMAB [Suspect]
     Dosage: ROUTE, FORM: INFUSION, FREQUENCY AS PER PROTOCOL.
     Route: 042
  3. TAXOTERE [Suspect]
     Dosage: ROUTE, FORM: INFUSION, FREQUENCY AS PER PROTOCOL.
     Route: 042

REACTIONS (6)
  - CANDIDIASIS [None]
  - COUGH [None]
  - DYSPNOEA [None]
  - HAEMOGLOBIN [None]
  - LYMPHOPENIA [None]
  - PYREXIA [None]
